FAERS Safety Report 7760456-3 (Version None)
Quarter: 2011Q3

REPORT INFORMATION
  Report Type: 
  Country: None (occurrence: None)
  Receive Date: 20110919
  Receipt Date: 20110907
  Transmission Date: 20111222
  Serious: Yes (Death, Life-Threatening)
  Sender: FDA-Public Use
  Company Number: JP-GENZYME-THYM-1002144

PATIENT
  Sex: Male
  Weight: 15 kg

DRUGS (77)
  1. PREDNISOLONE [Concomitant]
     Dosage: UNK
     Dates: start: 20090516, end: 20090517
  2. PREDNISOLONE [Concomitant]
     Dosage: UNK
     Dates: start: 20090520, end: 20090522
  3. TEPRENONE [Concomitant]
     Dosage: UNK
     Dates: start: 20090516, end: 20090517
  4. FLUOROMETHOLONE [Concomitant]
     Indication: PRODUCT USED FOR UNKNOWN INDICATION
     Dosage: UNK
     Dates: start: 20090608, end: 20090608
  5. PREDNISOLONE VALEROACETATE [Concomitant]
     Indication: PRODUCT USED FOR UNKNOWN INDICATION
     Dosage: 10 G, UNK
     Dates: start: 20090610, end: 20090610
  6. LIDOCAINE [Concomitant]
     Indication: PRODUCT USED FOR UNKNOWN INDICATION
     Dosage: 10 ML, QD
     Dates: start: 20090511, end: 20090511
  7. HEPARIN [Concomitant]
     Dosage: 10 ML, QD
     Dates: start: 20090622, end: 20090622
  8. HEPARIN [Concomitant]
     Dosage: 20 ML, QD
     Dates: start: 20090625, end: 20090625
  9. CEFAZOLIN [Concomitant]
     Indication: PRODUCT USED FOR UNKNOWN INDICATION
     Dosage: UNK
     Dates: start: 20090512, end: 20090512
  10. PREDNISOLONE SODIUM SUCCINATE INJ [Concomitant]
     Indication: PRODUCT USED FOR UNKNOWN INDICATION
     Dosage: 2 MG, QD
     Dates: start: 20090520, end: 20090520
  11. PREDNISOLONE SODIUM SUCCINATE INJ [Concomitant]
     Dosage: 3 MG, QD
     Dates: start: 20090521, end: 20090523
  12. FLOMOXEF SODIUM [Concomitant]
     Dosage: 1 G, QD
     Dates: start: 20090521, end: 20090606
  13. TEPRENONE [Concomitant]
     Indication: PRODUCT USED FOR UNKNOWN INDICATION
     Dosage: UNK
     Dates: start: 20090511, end: 20090513
  14. CLARITHROMYCIN [Concomitant]
     Indication: PRODUCT USED FOR UNKNOWN INDICATION
     Dosage: 100 MG, QD
     Dates: start: 20090512, end: 20090512
  15. CLARITHROMYCIN [Concomitant]
     Dosage: 200 MG, QD
     Dates: start: 20090518, end: 20090522
  16. CLARITHROMYCIN [Concomitant]
     Dosage: 100 MG, QD
     Dates: start: 20090523, end: 20090606
  17. TACROLIMUS [Concomitant]
     Dosage: UNK
     Dates: start: 20090615, end: 20090630
  18. ITRACONAZOLE [Concomitant]
     Indication: PRODUCT USED FOR UNKNOWN INDICATION
     Dosage: 7 ML, QD
     Dates: start: 20090615, end: 20090630
  19. SULFAMETHOPRIM [Concomitant]
     Indication: PRODUCT USED FOR UNKNOWN INDICATION
     Dosage: UNK
     Dates: start: 20090624, end: 20090625
  20. HEPARIN [Concomitant]
     Dosage: 10 ML, QD
     Dates: start: 20090630, end: 20090630
  21. GRANISETRON HYDROCHLORIDE [Concomitant]
     Indication: PRODUCT USED FOR UNKNOWN INDICATION
     Dosage: 2 MG, QD
     Dates: start: 20090513, end: 20090520
  22. FLUDARABINE PHOSPHATE [Concomitant]
     Indication: PRIMARY IMMUNODEFICIENCY SYNDROME
     Dosage: 20 MG, QD
     Dates: start: 20090513, end: 20090518
  23. CYCLOPHOSPHAMIDE [Concomitant]
     Dosage: 20 MG, QD
     Dates: start: 20090515, end: 20090518
  24. RAMOSETRON HYDROCHLORIDE [Concomitant]
     Indication: PRODUCT USED FOR UNKNOWN INDICATION
     Dosage: 0.15 MG, QD
     Dates: start: 20090518, end: 20090518
  25. PREDNISOLONE SODIUM SUCCINATE INJ [Concomitant]
     Dosage: 1.5 MG, QD
     Dates: start: 20090603, end: 20090607
  26. MIDAZOLAM HCL [Concomitant]
     Dosage: 10 MG, QD
     Dates: start: 20090625, end: 20090625
  27. CLARITHROMYCIN [Concomitant]
     Dosage: 100 MG, QD
     Dates: start: 20090514, end: 20090517
  28. TACROLIMUS [Concomitant]
     Dosage: 0.6 MG, QD
     Dates: start: 20090522, end: 20090525
  29. HEPARIN [Concomitant]
     Dosage: 2.25 ML, QD
     Dates: start: 20090512, end: 20090617
  30. METHYLPREDNISOLONE SODIUM SUCCINATE [Concomitant]
     Indication: PREMEDICATION
     Dosage: 15 MG, QD
     Dates: start: 20090513, end: 20090515
  31. PREDNISOLONE SODIUM SUCCINATE INJ [Concomitant]
     Dosage: 2 MG, QD
     Dates: start: 20090527, end: 20090602
  32. PREDNISOLONE [Concomitant]
     Dosage: UNK
     Dates: start: 20090617, end: 20090630
  33. MIDAZOLAM HCL [Concomitant]
     Dosage: 2.5 ML, QD
     Dates: start: 20090511, end: 20090511
  34. URSODIOL [Concomitant]
     Indication: PROPHYLAXIS
     Dosage: UNK
     Dates: start: 20090513, end: 20090626
  35. HEPARIN [Concomitant]
     Indication: PRODUCT USED FOR UNKNOWN INDICATION
     Dosage: UNK
     Dates: start: 20090514, end: 20090514
  36. SODIUM PICOSULFATE [Concomitant]
     Indication: PRODUCT USED FOR UNKNOWN INDICATION
     Dosage: 10 ML, UNK
     Dates: start: 20090515, end: 20090515
  37. TACROLIMUS [Concomitant]
     Dosage: 0.3 MG, QD
     Dates: start: 20090520, end: 20090521
  38. LIDOCAINE [Concomitant]
     Dosage: 10 ML, QD
     Dates: start: 20090625, end: 20090625
  39. HEPARIN [Concomitant]
     Indication: PROPHYLAXIS
     Dosage: 10 ML, QD
     Dates: start: 20090511, end: 20090511
  40. RAMOSETRON HYDROCHLORIDE [Concomitant]
     Dosage: 0.3 MG, QD
     Dates: start: 20090520, end: 20090520
  41. MELPHALAN HYDROCHLORIDE [Concomitant]
     Indication: PRODUCT USED FOR UNKNOWN INDICATION
     Dosage: 60 MG, QD
     Dates: start: 20090519, end: 20090519
  42. PREDNISOLONE SODIUM SUCCINATE INJ [Concomitant]
     Dosage: 2 MG, QD
     Dates: start: 20090609, end: 20090615
  43. MICAFUNGIN SODIUM [Concomitant]
     Indication: PRODUCT USED FOR UNKNOWN INDICATION
     Dosage: 25 MG, QD
     Dates: start: 20090521, end: 20090615
  44. METHOTREXATE [Concomitant]
     Dosage: 6.5 MG, QD
     Dates: start: 20090524, end: 20090524
  45. MANGANESE CHLORIDE ZINC SULFATE COMBINED DRUG [Concomitant]
     Indication: PRODUCT USED FOR UNKNOWN INDICATION
     Dosage: 1 ML, QD
     Dates: start: 20090524, end: 20090617
  46. MEROPENEM [Concomitant]
     Dosage: 0.9 G, QD
     Dates: start: 20090607, end: 20090611
  47. CLARITHROMYCIN [Concomitant]
     Dosage: 200 MG, QD
     Dates: start: 20090513, end: 20090513
  48. TACROLIMUS [Concomitant]
     Dosage: 0.4 MG, QD
     Dates: start: 20090526, end: 20090615
  49. DIFLUPREDNATE [Concomitant]
     Indication: PRODUCT USED FOR UNKNOWN INDICATION
     Dosage: 10 G, UNK
     Dates: start: 20090608, end: 20090608
  50. WHITE PETROLEUM [Concomitant]
     Indication: PRODUCT USED FOR UNKNOWN INDICATION
     Dosage: 50 G, UNK
     Dates: start: 20090609, end: 20090609
  51. HEPARIN [Concomitant]
     Dosage: 10 ML, QD
     Dates: start: 20090617, end: 20090617
  52. RAMOSETRON HYDROCHLORIDE [Concomitant]
     Dosage: 60 MG, QD
     Dates: start: 20090825
  53. FLOMOXEF SODIUM [Concomitant]
     Indication: PRODUCT USED FOR UNKNOWN INDICATION
     Dosage: 1.5 G, QD
     Dates: start: 20090521, end: 20090605
  54. METHOTREXATE [Concomitant]
     Dosage: 6.5 MG, QD
     Dates: start: 20090527, end: 20090527
  55. ACYCLOVIR [Concomitant]
     Indication: PROPHYLAXIS
     Dosage: 150 MG, BID
     Dates: start: 20090522, end: 20090615
  56. PREDNISOLONE [Concomitant]
     Indication: PRODUCT USED FOR UNKNOWN INDICATION
     Dosage: UNK
     Dates: start: 20090511, end: 20090513
  57. TEPRENONE [Concomitant]
     Dosage: UNK
     Dates: start: 20090520, end: 20090522
  58. MIDAZOLAM HCL [Concomitant]
     Indication: PRODUCT USED FOR UNKNOWN INDICATION
     Dosage: 2 ML, QD
     Dates: start: 20090511, end: 20090511
  59. CANDESARTAN CILEXETIL [Concomitant]
     Indication: PRODUCT USED FOR UNKNOWN INDICATION
     Dosage: UNK
     Dates: start: 20090520, end: 20090630
  60. PREDNISOLONE SODIUM SUCCINATE INJ [Concomitant]
     Dosage: 2.15 MG, QD
     Dates: start: 20090608, end: 20090608
  61. PREDNISOLONE SODIUM SUCCINATE INJ [Concomitant]
     Dosage: 1.8 MG, QD
     Dates: start: 20090616, end: 20090616
  62. MEROPENEM [Concomitant]
     Indication: PRODUCT USED FOR UNKNOWN INDICATION
     Dosage: 0.6 G, QD
     Dates: start: 20090606, end: 20090606
  63. TOTAL BODY IRRADIATION [Concomitant]
     Indication: PRODUCT USED FOR UNKNOWN INDICATION
     Dosage: UNK
     Dates: start: 20090519, end: 20090520
  64. THYMOGLOBULIN [Suspect]
     Indication: BONE MARROW CONDITIONING REGIMEN
     Dosage: 40 MG, QD
     Route: 042
     Dates: start: 20090513, end: 20090514
  65. AMBROXOL [Concomitant]
     Indication: PRODUCT USED FOR UNKNOWN INDICATION
     Dosage: UNK
     Dates: start: 20090512, end: 20090630
  66. TACROLIMUS [Concomitant]
     Indication: PROPHYLAXIS AGAINST GRAFT VERSUS HOST DISEASE
     Dosage: 10 G, UNK
     Dates: start: 20090608, end: 20090608
  67. CHLORPHENIRAMINE MALEATE [Concomitant]
     Indication: PREMEDICATION
     Dosage: 2.5 MG, UNK
     Dates: start: 20090513, end: 20090515
  68. MESNA [Concomitant]
     Indication: PRODUCT USED FOR UNKNOWN INDICATION
     Dosage: 600 MG, QD
     Dates: start: 20090515, end: 20090518
  69. PREDNISOLONE SODIUM SUCCINATE INJ [Concomitant]
     Dosage: 2.5 MG, QD
     Dates: start: 20090524, end: 20090526
  70. PREDNISOLONE SODIUM SUCCINATE INJ [Concomitant]
     Dosage: 0.8 MG, QD
     Dates: start: 20090616, end: 20090616
  71. METHOTREXATE [Concomitant]
     Indication: PROPHYLAXIS AGAINST GRAFT VERSUS HOST DISEASE
     Dosage: 10 MG, QD
     Dates: start: 20090522, end: 20090522
  72. METHOTREXATE [Concomitant]
     Dosage: 6.5 MG, QD
     Dates: start: 20090601, end: 20090601
  73. LENOGRASTIM [Concomitant]
     Indication: PRODUCT USED FOR UNKNOWN INDICATION
     Dosage: 100 MCG, QD
     Dates: start: 20090526, end: 20090613
  74. CYCLOPHOSPHAMIDE [Concomitant]
     Indication: PRODUCT USED FOR UNKNOWN INDICATION
     Dosage: 520 MG, QD
     Dates: start: 20090515, end: 20090518
  75. HAPTOGLOBINS [Concomitant]
     Indication: PRODUCT USED FOR UNKNOWN INDICATION
     Dosage: UNK
     Dates: start: 20090521, end: 20090521
  76. METOCLOPRAMIDE [Concomitant]
     Indication: PROPHYLAXIS AGAINST GRAFT VERSUS HOST DISEASE
     Dosage: 3 MG, QD
     Dates: start: 20090523, end: 20090526
  77. MIXED AMINO ACID CARBOHYDRATE ELECTROLYTE VITAMIN COMBINED DRUG [Concomitant]
     Indication: PRODUCT USED FOR UNKNOWN INDICATION
     Dosage: 1103 ML, QD
     Dates: start: 20090524, end: 20090617

REACTIONS (2)
  - HAEMOLYTIC ANAEMIA [None]
  - IDIOPATHIC THROMBOCYTOPENIC PURPURA [None]
